FAERS Safety Report 11152889 (Version 2)
Quarter: 2015Q3

REPORT INFORMATION
  Report Type: Spontaneous
  Country: AU (occurrence: AU)
  Receive Date: 20150601
  Receipt Date: 20150709
  Transmission Date: 20151125
  Serious: Yes (Death)
  Sender: FDA-Public Use
  Company Number: AU-ASTRAZENECA-2015SE51782

PATIENT
  Age: 26714 Day
  Sex: Male

DRUGS (1)
  1. ZOLADEX [Suspect]
     Active Substance: GOSERELIN ACETATE
     Indication: PROSTATE CANCER
     Dosage: STRENGTH UNKNOWN
     Route: 058
     Dates: end: 201503

REACTIONS (3)
  - Quadriplegia [Fatal]
  - Malignant neoplasm progression [Fatal]
  - Spinal cord compression [Fatal]
